FAERS Safety Report 5296316-X (Version None)
Quarter: 2007Q2

REPORT INFORMATION
  Report Type: 
  Country: None (occurrence: None)
  Receive Date: 20070413
  Receipt Date: 20070402
  Transmission Date: 20071010
  Serious: Yes (Hospitalization, Other)
  Sender: FDA-Public Use
  Company Number: NO-ELI_LILLY_AND_COMPANY-NO200704001082

PATIENT
  Age: 72 Year
  Sex: Male
  Weight: 84 kg

DRUGS (12)
  1. GEMZAR [Suspect]
     Indication: PANCREATIC CARCINOMA METASTATIC
     Dosage: 1900 MG, WEEKLY WITH 1WK PAUSE EVERY 8 WEEKS
     Dates: start: 20060615, end: 20070111
  2. TENORMIN [Concomitant]
     Dosage: 50 MG, UNK
  3. NEXIUM [Concomitant]
     Dosage: 20 MG, UNK
  4. SIMVASTATIN [Concomitant]
     Dosage: 20 MG, UNK
  5. ADALAT [Concomitant]
     Dosage: 30 MG, UNK
  6. CREON [Concomitant]
     Dosage: 6 U, UNK
  7. FURIX [Concomitant]
     Dosage: 250 MG, UNK
  8. PREDNISOLONE [Concomitant]
     Dosage: 5 MG, UNK
  9. INSULATARD [Concomitant]
     Dosage: 20 U, UNK
  10. NOVORAPID [Concomitant]
     Dosage: 4 U, BEFORE MEALS
  11. ZOPICLONE [Concomitant]
     Dosage: 7.5 MG, EACH EVENING
  12. ALBYL-E [Concomitant]
     Dosage: 160 MG, UNK

REACTIONS (6)
  - ANAEMIA [None]
  - HAEMOLYTIC URAEMIC SYNDROME [None]
  - LISTLESS [None]
  - OEDEMA PERIPHERAL [None]
  - RENAL FAILURE CHRONIC [None]
  - THROMBOTIC THROMBOCYTOPENIC PURPURA [None]
